FAERS Safety Report 24064294 (Version 2)
Quarter: 2025Q2

REPORT INFORMATION
  Report Type: Spontaneous
  Country: US (occurrence: US)
  Receive Date: 20240709
  Receipt Date: 20250427
  Transmission Date: 20250716
  Serious: No
  Sender: ELI LILLY AND COMPANY
  Company Number: US-ELI_LILLY_AND_COMPANY-US202407004138

PATIENT
  Age: 47 Year
  Sex: Female

DRUGS (3)
  1. VERZENIO [Suspect]
     Active Substance: ABEMACICLIB
     Indication: Breast cancer female
     Dosage: UNK UNK, BID
     Route: 048
     Dates: start: 20240521
  2. VERZENIO [Suspect]
     Active Substance: ABEMACICLIB
     Dosage: 50 MG, BID
     Route: 048
  3. VERZENIO [Suspect]
     Active Substance: ABEMACICLIB
     Dosage: 1 DOSAGE FORM, BID
     Route: 048

REACTIONS (4)
  - Photopsia [Unknown]
  - Hot flush [Unknown]
  - Visual impairment [Unknown]
  - Neutropenia [Not Recovered/Not Resolved]
